FAERS Safety Report 20152536 (Version 1)
Quarter: 2021Q4

REPORT INFORMATION
  Report Type: Spontaneous
  Country: US (occurrence: US)
  Receive Date: 20211206
  Receipt Date: 20211206
  Transmission Date: 20220304
  Serious: No
  Sender: FDA-Public Use
  Company Number: US-LANNETT COMPANY, INC.-US-2021LAN000194

PATIENT
  Sex: Male

DRUGS (2)
  1. PILOCARPINE HYDROCHLORIDE [Suspect]
     Active Substance: PILOCARPINE HYDROCHLORIDE
     Indication: Aptyalism
     Dosage: 5 MG, TID
     Route: 048
  2. PILOCARPINE HYDROCHLORIDE [Suspect]
     Active Substance: PILOCARPINE HYDROCHLORIDE
     Indication: Tooth injury

REACTIONS (6)
  - Adverse event [Unknown]
  - Hyperhidrosis [Unknown]
  - Visual impairment [Unknown]
  - Speech disorder [Unknown]
  - Drug ineffective [Unknown]
  - Product dose omission issue [Unknown]

NARRATIVE: CASE EVENT DATE: 20210101
